FAERS Safety Report 7636769-2 (Version None)
Quarter: 2011Q3

REPORT INFORMATION
  Report Type: 
  Country: None (occurrence: None)
  Receive Date: 20110726
  Receipt Date: 20110718
  Transmission Date: 20111222
  Serious: Yes (Other)
  Sender: FDA-Public Use
  Company Number: GB-ABBOTT-11P-167-0696560-00

PATIENT
  Sex: Female
  Weight: 65 kg

DRUGS (2)
  1. LEFLUNOMIDE [Concomitant]
     Indication: PRODUCT USED FOR UNKNOWN INDICATION
     Dates: start: 20050615, end: 20100810
  2. HUMIRA [Suspect]
     Indication: RHEUMATOID ARTHRITIS
     Route: 058
     Dates: start: 20080729, end: 20091223

REACTIONS (3)
  - NEOPLASM MALIGNANT [None]
  - TUBERCULOSIS [None]
  - LUNG DISORDER [None]
